FAERS Safety Report 7481018-1 (Version None)
Quarter: 2011Q2

REPORT INFORMATION
  Report Type: 
  Country: None (occurrence: None)
  Receive Date: 20110512
  Receipt Date: 20110512
  Transmission Date: 20111010
  Serious: Yes (Life-Threatening)
  Sender: FDA-Public Use
  Company Number: None

PATIENT
  Age: 67 Year
  Sex: Female
  Weight: 99.7913 kg

DRUGS (1)
  1. CORCYPS [Suspect]
     Indication: GOUT
     Dosage: .06 MG. 2X/DAY (TOOK ONLY 1 PILL)
     Dates: start: 20110414

REACTIONS (8)
  - RENAL DISORDER [None]
  - CONSTIPATION [None]
  - GASTROINTESTINAL DISORDER [None]
  - CHEST DISCOMFORT [None]
  - NAUSEA [None]
  - DYSPNOEA [None]
  - DYSPEPSIA [None]
  - DIZZINESS [None]
